FAERS Safety Report 11630343 (Version 1)
Quarter: 2015Q4

REPORT INFORMATION
  Report Type: Spontaneous
  Country: CN (occurrence: CN)
  Receive Date: 20151014
  Receipt Date: 20151014
  Transmission Date: 20160304
  Serious: Yes (Other)
  Sender: FDA-Public Use
  Company Number: CN-JNJFOC-20151008713

PATIENT

DRUGS (1)
  1. REMICADE [Suspect]
     Active Substance: INFLIXIMAB
     Indication: CROHN^S DISEASE
     Dosage: 0, 2, AND 6 WEEKS, FOLLOWED BY REGULAR 8-WEEKLY INFUSIONS THEREAFTER
     Route: 042

REACTIONS (2)
  - Surgery [Unknown]
  - Obstruction [Unknown]
